FAERS Safety Report 24091074 (Version 1)
Quarter: 2024Q3

REPORT INFORMATION
  Report Type: Spontaneous
  Country: ES (occurrence: ES)
  Receive Date: 20240715
  Receipt Date: 20240715
  Transmission Date: 20241017
  Serious: Yes (Life-Threatening, Hospitalization, Other)
  Sender: GUERBET
  Company Number: None

PATIENT
  Age: 89 Year
  Sex: Female
  Weight: 80 kg

DRUGS (9)
  1. OPTIRAY 300 [Suspect]
     Active Substance: IOVERSOL
     Indication: Computerised tomogram
     Dosage: TOTAL EFFECTIVE DOSE
     Route: 042
     Dates: start: 20240613, end: 20240613
  2. Bisoprolol normon 1,25 mg film-coated tablets efg, 20 tablets (blister [Concomitant]
     Indication: Product used for unknown indication
  3. Pravastatin stada 20 mg film-coated tablets efg 28 tablets (PVC/PVD/AL [Concomitant]
     Indication: Product used for unknown indication
  4. Lantus solostar 100 units/ml solution for injection in pre-filled pen, [Concomitant]
     Indication: Product used for unknown indication
  5. Nolotil 575 mg hard capsules, 20 capsules [Concomitant]
     Indication: Product used for unknown indication
  6. Forxiga 10 mg film-coated tablets, 28 tablets [Concomitant]
     Indication: Product used for unknown indication
  7. Deltius 25.000 IU/2.5 ml oral solution, 4 bottles of 2.5 ml [Concomitant]
     Indication: Product used for unknown indication
  8. PROLIA [Concomitant]
     Active Substance: DENOSUMAB
     Indication: Product used for unknown indication
  9. Spiraxin 200mg film-coated tablets, 12 tablets [Concomitant]
     Indication: Product used for unknown indication

REACTIONS (2)
  - Shock [Recovering/Resolving]
  - Acute respiratory failure [Recovering/Resolving]

NARRATIVE: CASE EVENT DATE: 20240613
